FAERS Safety Report 6611222-3 (Version None)
Quarter: 2010Q1

REPORT INFORMATION
  Report Type: 
  Country: None (occurrence: None)
  Receive Date: 20100303
  Receipt Date: 20100217
  Transmission Date: 20100710
  Serious: Yes (Hospitalization)
  Sender: FDA-Public Use
  Company Number: AT-ELI_LILLY_AND_COMPANY-AT201002005679

PATIENT
  Age: 74 Year
  Sex: Female
  Weight: 88 kg

DRUGS (10)
  1. FORTEO [Suspect]
     Indication: OSTEOPOROSIS
     Dosage: 20 UG, DAILY (1/D)
     Route: 058
     Dates: start: 20090119
  2. FOSAMAX [Concomitant]
     Indication: OSTEOPOROSIS
     Dosage: 70 MG, DAILY (1/D)
     Route: 048
  3. GABAPENTIN [Concomitant]
     Indication: TRIGEMINAL NEURALGIA
     Dosage: 1600 MG, DAILY (1/D)
     Route: 048
  4. CYMBALTA [Concomitant]
     Dosage: 60 MG, DAILY (1/D)
     Route: 048
  5. AMITRIPTYLINE HYDROCHLORIDE [Concomitant]
     Dosage: 25 MG, DAILY (1/D)
     Route: 048
  6. SIRDALUD [Concomitant]
     Indication: TENSION
     Dosage: 6 MG, DAILY (1/D)
     Route: 048
  7. LIORESAL [Concomitant]
     Indication: MUSCLE SPASMS
     Dosage: 25 MG, DAILY (1/D)
     Route: 048
  8. ACEMIN [Concomitant]
     Indication: HYPERTENSION
     Dosage: 5 MG, DAILY (1/D)
     Route: 048
  9. LASIX [Concomitant]
     Indication: OEDEMA
     Dosage: 40 MG, DAILY (1/D)
     Route: 048
  10. PANTOLOC                           /01263201/ [Concomitant]
     Indication: STRESS ULCER
     Dosage: 20 MG, DAILY (1/D)
     Route: 048

REACTIONS (1)
  - PULMONARY EMBOLISM [None]
